FAERS Safety Report 16183862 (Version 1)
Quarter: 2019Q2

REPORT INFORMATION
  Report Type: Spontaneous
  Country: US (occurrence: US)
  Receive Date: 20190410
  Receipt Date: 20190410
  Transmission Date: 20190711
  Serious: No
  Sender: FDA-Public Use
  Company Number: None

PATIENT
  Age: 50 Year
  Sex: Female
  Weight: 60.3 kg

DRUGS (12)
  1. MULTI VITAMIN [Concomitant]
     Active Substance: VITAMINS
  2. MAGNESIUM [Concomitant]
     Active Substance: MAGNESIUM
  3. CALCIUM [Concomitant]
     Active Substance: CALCIUM
  4. BLACK CURRENT OIL [Concomitant]
  5. CARNITINE [Concomitant]
     Active Substance: CARNITINE
  6. MUCINEX DM [Suspect]
     Active Substance: DEXTROMETHORPHAN HYDROBROMIDE\GUAIFENESIN
     Indication: NASOPHARYNGITIS
     Dosage: ?          QUANTITY:30 TABLET(S);?
     Route: 048
     Dates: start: 20190330, end: 20190405
  7. SERTRALINE [Suspect]
     Active Substance: SERTRALINE HYDROCHLORIDE
     Indication: ANXIETY
     Dosage: ?          QUANTITY:100 TABLET(S);?
     Route: 048
     Dates: start: 20170202
  8. FLONASE [Concomitant]
     Active Substance: FLUTICASONE PROPIONATE
  9. FISH OIL [Concomitant]
     Active Substance: FISH OIL
  10. ZINC. [Concomitant]
     Active Substance: ZINC
  11. VITAMIN B C D [Concomitant]
  12. ACETAMINOPHEN. [Concomitant]
     Active Substance: ACETAMINOPHEN

REACTIONS (7)
  - Nasopharyngitis [None]
  - Drug ineffective [None]
  - Oropharyngeal pain [None]
  - Cough [None]
  - Drug interaction [None]
  - Serotonin syndrome [None]
  - Product use complaint [None]

NARRATIVE: CASE EVENT DATE: 20190403
